FAERS Safety Report 8816821 (Version 1)
Quarter: 2012Q4

REPORT INFORMATION
  Report Type: Spontaneous
  Country: IT (occurrence: None)
  Receive Date: 20121001
  Receipt Date: 20121001
  Transmission Date: 20130627
  Serious: Yes (Disabling, Other)
  Sender: FDA-Public Use
  Company Number: KAD201209-000438

PATIENT
  Age: 60 Year
  Sex: Male

DRUGS (3)
  1. RIBAVIRIN [Suspect]
     Indication: CHRONIC HEPATITIS C
  2. PEGINTERFERON ALFA-2B [Suspect]
     Indication: CHRONIC HEPATITIS C
     Route: 058
  3. INTERFERON [Suspect]
     Indication: CHRONIC HEPATITIS C
     Dosage: 3 MU/3 times a week

REACTIONS (9)
  - Sudden hearing loss [None]
  - Anaemia [None]
  - Platelet count decreased [None]
  - Fatigue [None]
  - Refusal of treatment by patient [None]
  - Deafness neurosensory [None]
  - No therapeutic response [None]
  - Treatment failure [None]
  - Toxicity to various agents [None]
